FAERS Safety Report 7401712-8 (Version None)
Quarter: 2011Q1

REPORT INFORMATION
  Report Type: 
  Country: None (occurrence: None)
  Receive Date: 20110329
  Receipt Date: 20110315
  Transmission Date: 20110831
  Serious: Yes (Death, Hospitalization)
  Sender: FDA-Public Use
  Company Number: UTC-005928

PATIENT
  Age: 27 Year
  Sex: Female

DRUGS (2)
  1. REMODULIN [Suspect]
     Indication: PULMONARY ARTERIAL HYPERTENSION
     Dosage: SUBCUTANEOUS
     Route: 058
     Dates: start: 20080201
  2. SITAXSENTAN (SITAXENTAN) [Concomitant]

REACTIONS (5)
  - PULSELESS ELECTRICAL ACTIVITY [None]
  - BLOOD PRESSURE DECREASED [None]
  - HAEMOPTYSIS [None]
  - TACHYCARDIA [None]
  - RESPIRATORY FAILURE [None]
